FAERS Safety Report 5459912-2 (Version None)
Quarter: 2007Q3

REPORT INFORMATION
  Report Type: 
  Country: None (occurrence: None)
  Receive Date: 20070919
  Receipt Date: 20070501
  Transmission Date: 20080115
  Serious: Yes (Life-Threatening)
  Sender: FDA-Public Use
  Company Number: US-ASTRAZENECA-2007UW09303

PATIENT
  Sex: Male

DRUGS (1)
  1. SEROQUEL [Suspect]
     Dosage: 300 MG TOTAL DAILY SPLIT DOSING WITH DOSE SMALLER IN AM THAN IN PM
     Route: 048

REACTIONS (1)
  - SUICIDAL IDEATION [None]
